FAERS Safety Report 9167481 (Version 2)
Quarter: 2013Q2

REPORT INFORMATION
  Report Type: Spontaneous
  Country: DE (occurrence: DE)
  Receive Date: 20130318
  Receipt Date: 20130506
  Transmission Date: 20140414
  Serious: Yes (Life-Threatening, Hospitalization, Disabling)
  Sender: FDA-Public Use
  Company Number: DE-JNJFOC-20130303603

PATIENT
  Age: 84 Year
  Sex: Female
  Weight: 62 kg

DRUGS (7)
  1. XARELTO [Suspect]
     Indication: CEREBROVASCULAR ACCIDENT PROPHYLAXIS
     Route: 048
     Dates: start: 20120820, end: 20120906
  2. XARELTO [Suspect]
     Indication: ATRIAL FIBRILLATION
     Route: 048
     Dates: start: 20120820, end: 20120906
  3. LISINOPRIL [Concomitant]
     Route: 065
  4. SPIRONOLACTON AL [Concomitant]
     Route: 048
     Dates: start: 20120829
  5. BELOC-ZOK [Concomitant]
     Route: 048
  6. DIGITOXIN [Concomitant]
     Route: 048
     Dates: start: 20120827
  7. TORASEMID [Concomitant]
     Route: 048
     Dates: start: 20120829

REACTIONS (1)
  - Cerebrovascular accident [Not Recovered/Not Resolved]
